FAERS Safety Report 5924768-8 (Version None)
Quarter: 2008Q4

REPORT INFORMATION
  Report Type: 
  Country: None (occurrence: None)
  Receive Date: 20081017
  Receipt Date: 20080815
  Transmission Date: 20090506
  Serious: Yes (Hospitalization)
  Sender: FDA-Public Use
  Company Number: WAES0806USA02134

PATIENT
  Age: 81 Year
  Sex: Male
  Weight: 84.8226 kg

DRUGS (33)
  1. CAP VORINOSTAT UNK [Suspect]
     Indication: ACUTE MYELOID LEUKAEMIA
     Dosage: 400 MG/DAILY/PO
     Route: 048
     Dates: start: 20080317, end: 20080413
  2. CAP VORINOSTAT UNK [Suspect]
     Indication: ACUTE MYELOID LEUKAEMIA
     Dosage: 400 MG/DAILY/PO
     Route: 048
     Dates: start: 20080414, end: 20080513
  3. CAP VORINOSTAT UNK [Suspect]
     Indication: ACUTE MYELOID LEUKAEMIA
     Dosage: 400 MG/DAILY/PO
     Route: 048
     Dates: start: 20080514, end: 20080615
  4. CAP VORINOSTAT UNK [Suspect]
     Indication: ACUTE MYELOID LEUKAEMIA
     Dosage: 400 MG/DAILY/PO
     Route: 048
     Dates: start: 20080616, end: 20080722
  5. CAP VORINOSTAT UNK [Suspect]
     Indication: ACUTE MYELOID LEUKAEMIA
     Dosage: 400 MG/DAILY/PO
     Route: 048
     Dates: start: 20080723, end: 20080805
  6. DECITABINE UNK [Suspect]
     Indication: ACUTE MYELOID LEUKAEMIA
     Dosage: SEE IMAGE
     Route: 042
     Dates: start: 20080317, end: 20080321
  7. DECITABINE UNK [Suspect]
     Indication: ACUTE MYELOID LEUKAEMIA
     Dosage: SEE IMAGE
     Route: 042
     Dates: start: 20080414, end: 20080418
  8. DECITABINE UNK [Suspect]
     Indication: ACUTE MYELOID LEUKAEMIA
     Dosage: SEE IMAGE
     Route: 042
     Dates: start: 20080514, end: 20080518
  9. DECITABINE UNK [Suspect]
     Indication: ACUTE MYELOID LEUKAEMIA
     Dosage: SEE IMAGE
     Route: 042
     Dates: start: 20080616, end: 20080620
  10. DECITABINE UNK [Suspect]
     Indication: ACUTE MYELOID LEUKAEMIA
     Dosage: SEE IMAGE
     Route: 042
     Dates: start: 20080723, end: 20080727
  11. AVELOX [Concomitant]
  12. CENTRUM SILVER [Concomitant]
  13. COSOPT [Concomitant]
  14. OS-CAL + D [Concomitant]
  15. SINGULAIR [Concomitant]
  16. VITRON-C [Concomitant]
  17. ZETIA [Concomitant]
  18. ACYCLOVIR [Concomitant]
  19. AMLODIPINE BESYLATE [Concomitant]
  20. ATORVASTATIN CALCIUM [Concomitant]
  21. DORZOLAMIDE HYDROCHLORIDE [Concomitant]
  22. FEXOFENADINE HYDROCHLORIDE [Concomitant]
  23. IMIPENEM [Concomitant]
  24. INSULIN GLARGINE [Concomitant]
  25. INSULIN LISPRO [Concomitant]
  26. LANSOPRAZOLE [Concomitant]
  27. OLMESARTAN MEDOXOMIL [Concomitant]
  28. PAROXETINE HYDROCHLORIDE [Concomitant]
  29. PIOGLITAZONE HYDROCHLORIDE [Concomitant]
  30. PREGABALIN [Concomitant]
  31. TAMSULOSIN HCL [Concomitant]
  32. VANCOMYCIN HYDROCHLORIDE [Concomitant]
  33. VANCOMYCIN HYDROCHLORIDE [Concomitant]

REACTIONS (5)
  - FEBRILE NEUTROPENIA [None]
  - FLATULENCE [None]
  - LOBAR PNEUMONIA [None]
  - PNEUMONIA FUNGAL [None]
  - PYREXIA [None]
